FAERS Safety Report 26120999 (Version 1)
Quarter: 2025Q4

REPORT INFORMATION
  Report Type: Spontaneous
  Country: US (occurrence: None)
  Receive Date: 20251203
  Receipt Date: 20251203
  Transmission Date: 20260118
  Serious: Yes (Other)
  Sender: FDA-CTU
  Company Number: None

PATIENT
  Age: 50 Year
  Sex: Male

DRUGS (5)
  1. LENALIDOMIDE [Suspect]
     Active Substance: LENALIDOMIDE
     Indication: Plasma cell myeloma in remission
     Dosage: FREQUENCY : DAILY;?
     Route: 048
  2. ALLOPURINOL TAB 300MG [Concomitant]
  3. ASPIRIN [Concomitant]
     Active Substance: ASPIRIN
  4. BYSTOLIC TAB 10MG [Concomitant]
  5. VALSART/HCTZ TAB 160-25MG [Concomitant]

REACTIONS (5)
  - Constipation [None]
  - Large intestine polyp [None]
  - Back pain [None]
  - Diverticular perforation [None]
  - Colonic abscess [None]

NARRATIVE: CASE EVENT DATE: 20250417
